FAERS Safety Report 4565135-1 (Version None)
Quarter: 2005Q1

REPORT INFORMATION
  Report Type: 
  Country: None (occurrence: None)
  Receive Date: 20050131
  Receipt Date: 20050126
  Transmission Date: 20050727
  Serious: Yes (Other)
  Sender: FDA-Public Use
  Company Number: 200510163DE

PATIENT
  Age: 67 Year
  Sex: Female
  Weight: 78 kg

DRUGS (2)
  1. ENOXAPARIN SODIUM [Suspect]
     Indication: THROMBOSIS PROPHYLAXIS
     Dosage: DOSE: 0-0-40
     Route: 058
     Dates: start: 20040819, end: 20041014
  2. HYGROTON [Concomitant]
     Indication: OEDEMA PERIPHERAL
     Route: 048
     Dates: start: 20020101

REACTIONS (11)
  - CONSTIPATION [None]
  - FLATULENCE [None]
  - HAEMATOMA [None]
  - HAIR DISORDER [None]
  - HYPERTRICHOSIS [None]
  - IMPAIRED HEALING [None]
  - PETECHIAE [None]
  - SKIN NECROSIS [None]
  - SLEEP DISORDER [None]
  - SUTURE RELATED COMPLICATION [None]
  - WOUND DEHISCENCE [None]
